FAERS Safety Report 7456422-8 (Version None)
Quarter: 2011Q2

REPORT INFORMATION
  Report Type: 
  Country: None (occurrence: None)
  Receive Date: 20110426
  Receipt Date: 20110412
  Transmission Date: 20111010
  Serious: Yes (Hospitalization, Other)
  Sender: FDA-Public Use
  Company Number: 20110309

PATIENT
  Age: 27 Year
  Sex: Female
  Weight: 53 kg

DRUGS (5)
  1. VENOFER [Suspect]
     Indication: IRON DEFICIENCY ANAEMIA
     Dosage: 200 MG OVER 1 HOUR
     Dates: start: 20101206, end: 20101206
  2. DESLORATADINE [Concomitant]
  3. SYMBICORT [Concomitant]
  4. VENOFER [Suspect]
     Indication: IRON DEFICIENCY ANAEMIA
     Dosage: UNKNOWN DOSE X 2
     Dates: start: 20101101, end: 20101101
  5. BIRTH CONTROL PILL [Concomitant]

REACTIONS (10)
  - FIBRIN D DIMER INCREASED [None]
  - INFUSION SITE DISCOLOURATION [None]
  - PRURITUS [None]
  - ERYTHEMA [None]
  - INFUSION SITE PAIN [None]
  - URTICARIA [None]
  - INFUSION SITE EXTRAVASATION [None]
  - WHITE BLOOD CELL COUNT INCREASED [None]
  - C-REACTIVE PROTEIN INCREASED [None]
  - FEELING HOT [None]
